FAERS Safety Report 18493691 (Version 2)
Quarter: 2022Q1

REPORT INFORMATION
  Report Type: Spontaneous
  Country: NL (occurrence: NL)
  Receive Date: 20201111
  Receipt Date: 20220121
  Transmission Date: 20220423
  Serious: Yes (Hospitalization, Other)
  Sender: FDA-Public Use
  Company Number: NL-AUROBINDO-AUR-APL-2020-055198

PATIENT
  Age: 50 Year

DRUGS (11)
  1. PHENYTOIN [Interacting]
     Active Substance: PHENYTOIN
     Indication: Product used for unknown indication
     Dosage: 75 MILLIGRAM, TWO TIMES A DAY
     Route: 042
  2. PHENYTOIN [Interacting]
     Active Substance: PHENYTOIN
     Dosage: 75 MILLIGRAM, 3 TIMES A DAY
     Route: 042
  3. VALPROATE SODIUM [Interacting]
     Active Substance: VALPROATE SODIUM
     Indication: Product used for unknown indication
     Dosage: 800 MILLIGRAM, TWO TIMES A DAY
     Route: 048
  4. MEROPENEM [Interacting]
     Active Substance: MEROPENEM
     Indication: Product used for unknown indication
     Dosage: 1000 MILLIGRAM, 3 TIMES A DAY
     Route: 042
  5. VALPROIC ACID [Interacting]
     Active Substance: VALPROIC ACID
     Indication: Product used for unknown indication
     Dosage: 800 MILLIGRAM, TWO TIMES A DAY
     Route: 042
  6. VALPROIC ACID [Interacting]
     Active Substance: VALPROIC ACID
     Dosage: 800 MILLIGRAM, 3 TIMES A DAY
     Route: 042
  7. CARBASPIRIN CALCIUM [Concomitant]
     Active Substance: CARBASPIRIN CALCIUM
     Indication: Product used for unknown indication
     Dosage: 100 MILLIGRAM, ONCE A DAY
     Route: 065
  8. ESOMEPRAZOLE [Concomitant]
     Active Substance: ESOMEPRAZOLE
     Indication: Product used for unknown indication
     Dosage: 10 MILLIGRAM, ONCE A DAY
     Route: 065
  9. ATORVASTATIN [Concomitant]
     Active Substance: ATORVASTATIN
     Indication: Product used for unknown indication
     Dosage: 40 MILLIGRAM, ONCE A DAY
     Route: 065
  10. LOPERAMIDE [Concomitant]
     Active Substance: LOPERAMIDE
     Indication: Product used for unknown indication
     Dosage: 1 MILLIGRAM
     Route: 048
  11. DIAZEPAM [Concomitant]
     Active Substance: DIAZEPAM
     Indication: Product used for unknown indication
     Dosage: 10 MILLIGRAM, AS NECESSARY
     Route: 065

REACTIONS (5)
  - Loss of consciousness [Unknown]
  - Dyspnoea [Unknown]
  - Hypotension [Unknown]
  - Drug interaction [Unknown]
  - Overdose [Unknown]
